FAERS Safety Report 12561401 (Version 1)
Quarter: 2016Q3

REPORT INFORMATION
  Report Type: Spontaneous
  Country: US (occurrence: US)
  Receive Date: 20160715
  Receipt Date: 20160715
  Transmission Date: 20161109
  Serious: No
  Sender: FDA-Public Use
  Company Number: US-BEH-2016071040

PATIENT
  Sex: Female
  Weight: 118.82 kg

DRUGS (17)
  1. RAMIPRIL. [Concomitant]
     Active Substance: RAMIPRIL
  2. OXYGEN. [Concomitant]
     Active Substance: OXYGEN
  3. ZEMAIRA [Suspect]
     Active Substance: .ALPHA.1-PROTEINASE INHIBITOR HUMAN
     Indication: ALPHA-1 ANTI-TRYPSIN DEFICIENCY
     Dosage: 60 MG/KG, QW
     Route: 042
  4. GABAPENTIN. [Concomitant]
     Active Substance: GABAPENTIN
  5. SODIUM CHLORIDE. [Concomitant]
     Active Substance: SODIUM CHLORIDE
  6. IBUPROFEN. [Concomitant]
     Active Substance: IBUPROFEN
  7. OPSUMIT [Concomitant]
     Active Substance: MACITENTAN
  8. ADEMPAS [Concomitant]
     Active Substance: RIOCIGUAT
  9. HEPARIN [Concomitant]
     Active Substance: HEPARIN SODIUM
  10. LIDOCAINE/PRILOCAINE [Concomitant]
     Active Substance: LIDOCAINE\PRILOCAINE
  11. PREDNISONE. [Concomitant]
     Active Substance: PREDNISONE
  12. SYNTHROID [Concomitant]
     Active Substance: LEVOTHYROXINE SODIUM
  13. ATENOLOL. [Concomitant]
     Active Substance: ATENOLOL
  14. LOSARTAN. [Concomitant]
     Active Substance: LOSARTAN
  15. EPIPEN [Concomitant]
     Active Substance: EPINEPHRINE
  16. ANORO ELLIPTA [Concomitant]
     Active Substance: UMECLIDINIUM BROMIDE\VILANTEROL TRIFENATATE
  17. DIPHENHYDRAMINE. [Concomitant]
     Active Substance: DIPHENHYDRAMINE

REACTIONS (1)
  - Bronchitis [Unknown]
